FAERS Safety Report 9630869 (Version 2)
Quarter: 2013Q4

REPORT INFORMATION
  Report Type: Spontaneous
  Country: US (occurrence: None)
  Receive Date: 20131015
  Receipt Date: 20131030
  Transmission Date: 20140711
  Serious: Yes (Other)
  Sender: FDA-Public Use
  Company Number: DSJ-2013-17263

PATIENT
  Age: 71 Year
  Sex: Female

DRUGS (13)
  1. BENICAR HCT [Suspect]
     Indication: PRODUCT USED FOR UNKNOWN INDICATION
     Dosage: 40-12.5 MG, PER ORAL
     Route: 048
  2. DILAUDID [Suspect]
     Indication: PRODUCT USED FOR UNKNOWN INDICATION
     Route: 037
  3. BACLOFEN [Suspect]
     Indication: SURGERY
     Route: 037
  4. VITAMIN C [Suspect]
     Indication: PRODUCT USED FOR UNKNOWN INDICATION
     Dosage: PER ORAL
     Route: 048
  5. BUPIVACAINE [Suspect]
  6. CLONIDINE [Suspect]
  7. DESYREL [Suspect]
     Dosage: NIGHTLY (100 MG, 1 IN 1 D) , PER ORAL
     Route: 048
  8. MIRAPEX [Suspect]
     Dosage: 1.5 MG (0.5 MG, 3 IN 1 D) PER ORAL
     Route: 048
  9. SYNTHROID , LEVOTHROID [Suspect]
     Dosage: EVERY MORNING BEFORE BREAKFAST (75 MCG, 1 IN 1 D) PER ORAL
     Route: 048
  10. GLUCOSAMINE-CHONDROITIN [Suspect]
     Dosage: FOR A DOSE: 500-400MG (1 DOSAGE FORMS, 3 IN 1 D) PER ORAL
     Route: 048
  11. COLESTID [Suspect]
     Dosage: 2 MG ( 1 GM, 2 IN 1 D) , PER ORAL
     Route: 048
  12. CALCIUM [Suspect]
     Dosage: 1 DOSAGE FORMS, PER ORAL
     Route: 048
  13. GREATER TROCHANTERIC BURSA STEROID (CORTICOSTEROIDS) (INJECTION) [Suspect]

REACTIONS (6)
  - Drug withdrawal syndrome [None]
  - Arthralgia [None]
  - Back pain [None]
  - Diarrhoea [None]
  - Pain [None]
  - Therapeutic response decreased [None]
